FAERS Safety Report 4668569-X (Version None)
Quarter: 2005Q2

REPORT INFORMATION
  Report Type: 
  Country: None (occurrence: None)
  Receive Date: 20050518
  Receipt Date: 20050503
  Transmission Date: 20051028
  Serious: No
  Sender: FDA-Public Use
  Company Number: B0377633A

PATIENT
  Age: 48 Year
  Sex: Female

DRUGS (3)
  1. MALARONE [Suspect]
     Indication: MALARIA PROPHYLAXIS
  2. TIMOLOL MALEATE [Concomitant]
  3. HYPROMELLOSE [Concomitant]

REACTIONS (1)
  - TRANSPLANT REJECTION [None]
